FAERS Safety Report 23291789 (Version 1)
Quarter: 2023Q4

REPORT INFORMATION
  Report Type: Spontaneous
  Country: CO (occurrence: CO)
  Receive Date: 20231213
  Receipt Date: 20231213
  Transmission Date: 20240110
  Serious: Yes (Death, Hospitalization, Other)
  Sender: FDA-Public Use
  Company Number: CO-ASTELLAS-2023US037063

PATIENT
  Sex: Male

DRUGS (2)
  1. CRESEMBA [Suspect]
     Active Substance: ISAVUCONAZONIUM SULFATE
     Indication: Prophylaxis
     Dosage: UNK UNK, UNKNOWN FREQ.
     Route: 065
  2. VENETOCLAX [Suspect]
     Active Substance: VENETOCLAX
     Indication: Leukaemia
     Dosage: UNK UNK, UNKNOWN FREQ.
     Route: 048

REACTIONS (4)
  - Leukaemia [Fatal]
  - Condition aggravated [Fatal]
  - Aspergillus infection [Unknown]
  - Off label use [Unknown]

NARRATIVE: CASE EVENT DATE: 20231101
